FAERS Safety Report 20952991 (Version 1)
Quarter: 2022Q2

REPORT INFORMATION
  Report Type: Report from Study
  Country: US (occurrence: US)
  Receive Date: 20220613
  Receipt Date: 20220613
  Transmission Date: 20220721
  Serious: Yes (Hospitalization)
  Sender: FDA-Public Use
  Company Number: US-ELI_LILLY_AND_COMPANY-US202206001507

PATIENT
  Age: 71 Year
  Sex: Female

DRUGS (2)
  1. BASAGLAR [Suspect]
     Active Substance: INSULIN GLARGINE
     Indication: Diabetes mellitus
     Dosage: 7 U, DAILY
     Route: 065
     Dates: start: 20211216
  2. HUMALOG [Suspect]
     Active Substance: INSULIN LISPRO
     Indication: Diabetes mellitus
     Dosage: 18 U, TID
     Route: 065
     Dates: start: 20211202

REACTIONS (4)
  - Hepatic cirrhosis [Unknown]
  - Fluid retention [Unknown]
  - Blood glucose fluctuation [Recovered/Resolved]
  - Pain [Recovered/Resolved]
